FAERS Safety Report 23388169 (Version 1)
Quarter: 2024Q1

REPORT INFORMATION
  Report Type: Report from Study
  Country: CA (occurrence: None)
  Receive Date: 20240110
  Receipt Date: 20240110
  Transmission Date: 20240410
  Serious: Yes (Other)
  Sender: FDA-Public Use
  Company Number: CA-PFIZER INC-202400001065

PATIENT
  Age: 70 Year
  Sex: Male

DRUGS (7)
  1. METHOTREXATE [Suspect]
     Active Substance: METHOTREXATE
     Indication: Product used for unknown indication
  2. COSENTYX [Suspect]
     Active Substance: SECUKINUMAB
     Indication: Psoriasis
  3. COSENTYX [Suspect]
     Active Substance: SECUKINUMAB
  4. ACITRETIN [Concomitant]
     Active Substance: ACITRETIN
  5. BETAMETHASONE DIPROPIONATE [Concomitant]
     Active Substance: BETAMETHASONE DIPROPIONATE
  6. FLUOCINONIDE [Concomitant]
     Active Substance: FLUOCINONIDE
  7. PERMETHRIN [Concomitant]
     Active Substance: PERMETHRIN

REACTIONS (5)
  - Drug ineffective [Recovering/Resolving]
  - Inappropriate schedule of product administration [Recovering/Resolving]
  - Off label use [Recovering/Resolving]
  - Retinal detachment [Recovering/Resolving]
  - Upper respiratory tract infection [Recovering/Resolving]
